FAERS Safety Report 12780382 (Version 1)
Quarter: 2016Q3

REPORT INFORMATION
  Report Type: Spontaneous
  Country: US (occurrence: US)
  Receive Date: 20160926
  Receipt Date: 20160926
  Transmission Date: 20161109
  Serious: Yes (Other)
  Sender: FDA-Public Use
  Company Number: None

PATIENT
  Age: 82 Year
  Sex: Female
  Weight: 90.72 kg

DRUGS (9)
  1. ADVIL [Concomitant]
     Active Substance: IBUPROFEN
  2. FUROSEMIDE. [Concomitant]
     Active Substance: FUROSEMIDE
  3. VITAMIN D [Concomitant]
     Active Substance: CHOLECALCIFEROL
  4. VITAMIN D3 [Concomitant]
     Active Substance: CHOLECALCIFEROL
  5. ASPIRIN. [Concomitant]
     Active Substance: ASPIRIN
  6. HI BLOOD PRESSURE MEDICINE [Concomitant]
  7. POTASSIUM CL [Concomitant]
     Active Substance: POTASSIUM CHLORIDE
  8. NAMENDA XR [Suspect]
     Active Substance: MEMANTINE HYDROCHLORIDE
     Indication: MEMORY IMPAIRMENT
     Dosage: 1 EA DAY 30 CAPSULES 1 IN AM MOUTH W/ WATER
     Route: 048
     Dates: start: 20160411, end: 20160414
  9. VITAMIN [Concomitant]
     Active Substance: VITAMINS

REACTIONS (2)
  - Vomiting [None]
  - Therapy change [None]
